FAERS Safety Report 24757915 (Version 1)
Quarter: 2024Q4

REPORT INFORMATION
  Report Type: Spontaneous
  Country: US (occurrence: US)
  Receive Date: 20241220
  Receipt Date: 20241220
  Transmission Date: 20250114
  Serious: No
  Sender: CIPLA
  Company Number: US-BMS-IMIDS-REMS-SI-12135301

PATIENT

DRUGS (2)
  1. LENALIDOMIDE [Suspect]
     Active Substance: LENALIDOMIDE
     Indication: Product used for unknown indication
     Dosage: UNK, DECREASING FROM 15 MG TO 10 MG
     Route: 065
  2. LENALIDOMIDE [Suspect]
     Active Substance: LENALIDOMIDE
     Dosage: UNK, 10 MG
     Route: 065

REACTIONS (1)
  - White blood cell count abnormal [Unknown]

NARRATIVE: CASE EVENT DATE: 20241101
